FAERS Safety Report 8849658 (Version 2)
Quarter: 2013Q1

REPORT INFORMATION
  Report Type: Report from Study
  Country: DE (occurrence: DE)
  Receive Date: 20121019
  Receipt Date: 20130104
  Transmission Date: 20140127
  Serious: Yes (Other)
  Sender: FDA-Public Use
  Company Number: DE-BAYER-2012-060187

PATIENT
  Age: 38 Year
  Sex: Female
  Weight: 69 kg

DRUGS (2)
  1. BETAFERON [Suspect]
     Indication: RELAPSING-REMITTING MULTIPLE SCLEROSIS
     Dosage: UNK
     Route: 058
     Dates: start: 20100615
  2. CITALOPRAM [Concomitant]
     Dosage: DAILY DOSE 10 MG
     Dates: start: 201009

REACTIONS (2)
  - Multiple sclerosis relapse [Recovered/Resolved]
  - Exposure during pregnancy [None]
